FAERS Safety Report 8809834 (Version 3)
Quarter: 2012Q4

REPORT INFORMATION
  Report Type: Report from Study
  Country: CA (occurrence: CA)
  Receive Date: 20120926
  Receipt Date: 20121109
  Transmission Date: 20130627
  Serious: Yes (Hospitalization, Other)
  Sender: FDA-Public Use
  Company Number: CA-ABBOTT-12P-028-0983978-00

PATIENT
  Age: 75 Year
  Sex: Female
  Weight: 65.83 kg

DRUGS (17)
  1. HUMIRA PEN [Suspect]
     Indication: RHEUMATOID ARTHRITIS
     Route: 058
     Dates: start: 20081016, end: 201209
  2. HUMIRA PEN [Suspect]
     Route: 058
     Dates: start: 201209
  3. METHOTREXATE [Concomitant]
     Indication: PRODUCT USED FOR UNKNOWN INDICATION
  4. METOPROLOL [Concomitant]
     Indication: CARDIAC DISORDER
     Route: 048
     Dates: start: 201209
  5. CITALOPRAM [Concomitant]
  6. DOMPERIDONE [Concomitant]
     Indication: NAUSEA
     Route: 048
     Dates: start: 2011
  7. DONEPEZIL [Concomitant]
     Indication: DEMENTIA
     Route: 048
     Dates: start: 2009
  8. LEVETIRACETAM [Concomitant]
     Indication: CONVULSION PROPHYLAXIS
     Route: 048
     Dates: start: 2011
  9. POLYETHYLENE GLYCOL [Concomitant]
     Indication: CONSTIPATION PROPHYLAXIS
     Route: 048
     Dates: start: 2011
  10. METHOTREXATE [Concomitant]
     Indication: RHEUMATOID ARTHRITIS
     Route: 058
     Dates: start: 2004
  11. FOLIC ACID [Concomitant]
     Indication: VITAMIN SUPPLEMENTATION
     Route: 048
     Dates: start: 2004
  12. HYDROXYCHLOROQUINE [Concomitant]
     Indication: RHEUMATOID ARTHRITIS
     Route: 048
  13. LEVOTHYROXINE [Concomitant]
     Indication: THYROID DISORDER
  14. SENNOSIDES [Concomitant]
     Indication: CONSTIPATION PROPHYLAXIS
     Route: 048
  15. VITAMIN B 12 [Concomitant]
     Indication: VITAMIN SUPPLEMENTATION
  16. ACETAMINOPHEN [Concomitant]
     Indication: RHEUMATOID ARTHRITIS
  17. DIMENHYDRINATE [Concomitant]
     Indication: NAUSEA
     Dosage: 20-50mg
     Route: 048

REACTIONS (6)
  - Convulsion [Unknown]
  - Sepsis [Unknown]
  - Bacterial infection [Unknown]
  - Myocardial infarction [Unknown]
  - Unresponsive to stimuli [Recovered/Resolved]
  - Infection [Unknown]
